FAERS Safety Report 4915838-1 (Version None)
Quarter: 2006Q1

REPORT INFORMATION
  Report Type: 
  Country: None (occurrence: None)
  Receive Date: 20060214
  Receipt Date: 20060207
  Transmission Date: 20060701
  Serious: Yes (Hospitalization)
  Sender: FDA-Public Use
  Company Number: APP200500517

PATIENT
  Age: 55 Year
  Sex: Female
  Weight: 57.6068 kg

DRUGS (21)
  1. FLUOROURACIL INJ [Suspect]
     Indication: GASTRIC CANCER STAGE IV
     Dosage: (1000 MG/M2, ONCE DAILY X 6 DAYS), INTRAVENOUS
     Route: 042
     Dates: start: 20051110, end: 20051115
  2. CISPLATIN [Suspect]
     Indication: GASTRIC CANCER STAGE IV
     Dosage: (100 MG/M2, 1 IN 1 D), INTRAVENOUS
     Route: 042
     Dates: start: 20051110, end: 20051110
  3. ATIVAN [Concomitant]
  4. COMPAZINE [Concomitant]
  5. COMPAZINE [Concomitant]
  6. OXYCODONE HCL [Concomitant]
  7. HYCODAN [Concomitant]
  8. NEULASTA [Concomitant]
  9. ALOXI [Concomitant]
  10. PHENERGAN (PROMETHAZINE) [Concomitant]
  11. DECADRON [Concomitant]
  12. KYTRIL [Concomitant]
  13. RHINOCORT AQUA (BUDESONIDE) [Concomitant]
  14. ALLEGRA [Concomitant]
  15. DITROPAN XL [Concomitant]
  16. MIRALAX [Concomitant]
  17. LUNESTA [Concomitant]
  18. EMEND [Concomitant]
  19. PEROXIDE (HYDROGEN PEROXIDE) [Concomitant]
  20. BACTROBAN [Concomitant]
  21. DIFLUCAN [Concomitant]

REACTIONS (12)
  - BACTERIAL INFECTION [None]
  - CATHETER RELATED INFECTION [None]
  - HYPOVOLAEMIA [None]
  - LIP BLISTER [None]
  - MALNUTRITION [None]
  - MUCOSAL INFLAMMATION [None]
  - NAUSEA [None]
  - ORAL CANDIDIASIS [None]
  - ORAL INTAKE REDUCED [None]
  - STAPHYLOCOCCAL INFECTION [None]
  - VOMITING [None]
  - WEIGHT DECREASED [None]
